FAERS Safety Report 8979103 (Version 1)
Quarter: 2012Q4

REPORT INFORMATION
  Report Type: 
  Country: US (occurrence: US)
  Receive Date: 20121221
  Receipt Date: 20121221
  Transmission Date: 20130627
  Serious: Yes (Other)
  Sender: FDA-Public Use
  Company Number: US-PFIZER INC-2012323353

PATIENT
  Age: 53 Year
  Sex: Female
  Weight: 79.37 kg

DRUGS (1)
  1. AROMASIN [Suspect]
     Indication: BREAST CANCER
     Dosage: 25 mg, daily
     Route: 048
     Dates: start: 2012, end: 20121011

REACTIONS (4)
  - Urinary tract infection fungal [Recovering/Resolving]
  - Arthralgia [Recovering/Resolving]
  - Hot flush [Recovering/Resolving]
  - Hyperhidrosis [Recovering/Resolving]
